FAERS Safety Report 24152753 (Version 3)
Quarter: 2025Q1

REPORT INFORMATION
  Report Type: Spontaneous
  Country: US (occurrence: US)
  Receive Date: 20240730
  Receipt Date: 20250109
  Transmission Date: 20250408
  Serious: No
  Sender: SANOFI AVENTIS
  Company Number: US-SA-SAC20240727000019

PATIENT
  Age: 3 Year
  Sex: Female

DRUGS (4)
  1. DUPIXENT [Suspect]
     Active Substance: DUPILUMAB
     Indication: Dermatitis atopic
     Route: 058
  2. DUPIXENT [Suspect]
     Active Substance: DUPILUMAB
     Dosage: 300 MG, Q4W
     Route: 058
  3. TRIAMCINOLONE [Concomitant]
     Active Substance: TRIAMCINOLONE
     Indication: Eczema
     Route: 061
  4. MOMETASONE [Concomitant]
     Active Substance: MOMETASONE
     Indication: Eczema
     Route: 061

REACTIONS (11)
  - Sleep disorder due to a general medical condition [Recovering/Resolving]
  - Skin haemorrhage [Recovering/Resolving]
  - Scratch [Recovering/Resolving]
  - Skin weeping [Recovering/Resolving]
  - Cutaneous symptom [Unknown]
  - Skin fissures [Recovering/Resolving]
  - Dry skin [Recovering/Resolving]
  - Pruritus [Recovering/Resolving]
  - Rash [Recovering/Resolving]
  - Off label use [Unknown]
  - Drug ineffective [Unknown]

NARRATIVE: CASE EVENT DATE: 20241001
